FAERS Safety Report 8384501 (Version 2)
Quarter: 2012Q4

REPORT INFORMATION
  Report Type: 
  Country: US (occurrence: US)
  Receive Date: 20120202
  Receipt Date: 20121001
  Transmission Date: 20130627
  Serious: Yes (Other)
  Sender: FDA-Public Use
  Company Number: US-US-EMD SERONO, INC.-7109195

PATIENT
  Age: 40 Year
  Sex: Female
  Weight: 68 kg

DRUGS (4)
  1. REBIF [Suspect]
     Indication: MULTIPLE SCLEROSIS
     Route: 058
     Dates: start: 20110602
  2. DEPAKOTE [Concomitant]
     Indication: MOOD SWINGS
  3. SEROQUEL [Concomitant]
     Indication: SLEEP DISORDER
  4. CYMBALTA [Concomitant]
     Indication: DEPRESSION

REACTIONS (1)
  - Grand mal convulsion [Recovered/Resolved]
